FAERS Safety Report 9576092 (Version 1)
Quarter: 2013Q4

REPORT INFORMATION
  Report Type: Spontaneous
  Country: US (occurrence: US)
  Receive Date: 20131001
  Receipt Date: 20131001
  Transmission Date: 20140711
  Serious: No
  Sender: FDA-Public Use
  Company Number: US-AMGEN-USASP2013001023

PATIENT
  Sex: Male
  Weight: 124.72 kg

DRUGS (9)
  1. ENBREL [Suspect]
     Indication: RHEUMATOID ARTHRITIS
     Dosage: 50 MG, QWK
     Route: 058
  2. METHOTREXATE [Concomitant]
     Dosage: 2.5 MG, UNK
  3. LIPITOR [Concomitant]
     Dosage: 40 MG, UNK
  4. ATENOLOL [Concomitant]
     Dosage: 25 MG, UNK
  5. HYDROCHLOROTH [Concomitant]
     Dosage: 12.5 MG, UNK
  6. LOSARTAN POTASSIUM [Concomitant]
     Dosage: 100 MG, UNK
  7. POTASSIUM [Concomitant]
     Dosage: 75 MG, UNK
  8. ASPIRIN BUFFERED [Concomitant]
     Dosage: 325 MG, UNK
  9. VITAMIN C                          /00008001/ [Concomitant]
     Dosage: 500 MG, UNK

REACTIONS (1)
  - Fatigue [Unknown]
